FAERS Safety Report 22959205 (Version 4)
Quarter: 2024Q2

REPORT INFORMATION
  Report Type: Report from Study
  Country: JP (occurrence: JP)
  Receive Date: 20230920
  Receipt Date: 20240628
  Transmission Date: 20240716
  Serious: Yes (Other)
  Sender: FDA-Public Use
  Company Number: JP-JNJFOC-20230940062

PATIENT

DRUGS (1)
  1. SIMPONI [Suspect]
     Active Substance: GOLIMUMAB
     Indication: Colitis ulcerative
     Dosage: DOSE UNKNOWN
     Route: 058

REACTIONS (8)
  - Pneumonia [Unknown]
  - Acute myocardial infarction [Unknown]
  - Cytomegalovirus infection [Unknown]
  - Clostridium difficile infection [Unknown]
  - Colitis ulcerative [Unknown]
  - Dermatitis [Unknown]
  - Oral herpes [Unknown]
  - Drug ineffective [Unknown]
